FAERS Safety Report 8887624 (Version 1)
Quarter: 2012Q4

REPORT INFORMATION
  Report Type: Spontaneous
  Country: US (occurrence: None)
  Receive Date: 20121101
  Receipt Date: 20121101
  Transmission Date: 20130627
  Serious: Yes (Death)
  Sender: FDA-Public Use
  Company Number: None

PATIENT
  Age: 68 Year
  Sex: Male
  Weight: 102.06 kg

DRUGS (1)
  1. CIPRO [Suspect]

REACTIONS (3)
  - Bipolar disorder [None]
  - Condition aggravated [None]
  - Completed suicide [None]
